FAERS Safety Report 16356534 (Version 5)
Quarter: 2020Q3

REPORT INFORMATION
  Report Type: Report from Study
  Country: None (occurrence: JP)
  Receive Date: 20190527
  Receipt Date: 20200807
  Transmission Date: 20201102
  Serious: Yes (Death, Hospitalization, Congenital Anomaly)
  Sender: FDA-Public Use
  Company Number: JP-ABBVIE-19P-087-2798087-00

PATIENT
  Age: 74 Year
  Sex: Male
  Weight: 66 kg

DRUGS (1)
  1. LEUPLIN [Suspect]
     Active Substance: LEUPROLIDE ACETATE
     Indication: BULBOSPINAL MUSCULAR ATROPHY CONGENITAL
     Route: 058
     Dates: start: 20180119, end: 20190315

REACTIONS (3)
  - Bulbospinal muscular atrophy congenital [Fatal]
  - Pneumonia [Fatal]
  - Disease progression [Fatal]

NARRATIVE: CASE EVENT DATE: 20190504
